FAERS Safety Report 16275305 (Version 1)
Quarter: 2019Q2

REPORT INFORMATION
  Report Type: Report from Study
  Country: IL (occurrence: IL)
  Receive Date: 20190506
  Receipt Date: 20190506
  Transmission Date: 20190711
  Serious: Yes (Other)
  Sender: FDA-Public Use
  Company Number: IL-IPSEN BIOPHARMACEUTICALS, INC.-2019-06758

PATIENT
  Age: 42 Year
  Sex: Female

DRUGS (2)
  1. SOMATOSTATIN [Concomitant]
     Active Substance: SOMATOSTATIN
  2. SOMATULINE [Suspect]
     Active Substance: LANREOTIDE ACETATE
     Indication: NEUROENDOCRINE TUMOUR
     Route: 058
     Dates: start: 20170322

REACTIONS (6)
  - Hypotension [Unknown]
  - Headache [Unknown]
  - Syncope [Unknown]
  - Diarrhoea [Unknown]
  - Blood glucose increased [Unknown]
  - Asthenia [Unknown]

NARRATIVE: CASE EVENT DATE: 2017
